FAERS Safety Report 5151117-8 (Version None)
Quarter: 2006Q4

REPORT INFORMATION
  Report Type: 
  Country: None (occurrence: None)
  Receive Date: 20061115
  Receipt Date: 20061016
  Transmission Date: 20070319
  Serious: Yes (Life-Threatening)
  Sender: FDA-Public Use
  Company Number: AU-JNJFOC-20061103072

PATIENT

DRUGS (2)
  1. TRAMADOL HCL [Suspect]
     Indication: DRUG USE FOR UNKNOWN INDICATION
     Route: 065
  2. CABERGOLINE [Concomitant]
     Indication: RESTLESS LEGS SYNDROME
     Route: 065

REACTIONS (1)
  - HYPERTENSIVE CRISIS [None]
